FAERS Safety Report 7779570-1 (Version None)
Quarter: 2011Q3

REPORT INFORMATION
  Report Type: 
  Country: None (occurrence: None)
  Receive Date: 20110927
  Receipt Date: 20110915
  Transmission Date: 20111222
  Serious: Yes (Other)
  Sender: FDA-Public Use
  Company Number: US-BAYER-2011-075929

PATIENT
  Age: 33 Year
  Sex: Female

DRUGS (2)
  1. MIRENA [Suspect]
     Indication: CONTRACEPTION
     Dosage: 20 MCG/24HR, CONT
     Route: 015
     Dates: start: 20110317, end: 20110824
  2. MIRENA [Suspect]
     Indication: MENORRHAGIA

REACTIONS (8)
  - HEADACHE [None]
  - VAGINAL HAEMORRHAGE [None]
  - LIBIDO DECREASED [None]
  - DISCOMFORT [None]
  - IRRITABILITY [None]
  - ABDOMINAL PAIN [None]
  - NAUSEA [None]
  - FUNGAL INFECTION [None]
